FAERS Safety Report 4282432-8 (Version None)
Quarter: 2004Q1

REPORT INFORMATION
  Report Type: 
  Country: None (occurrence: None)
  Receive Date: 20040112
  Receipt Date: 20031031
  Transmission Date: 20041129
  Serious: No
  Sender: FDA-Public Use
  Company Number: PHEH2003US10038

PATIENT
  Age: 1 Year
  Sex: Male
  Weight: 9.1 kg

DRUGS (1)
  1. ELIDEL [Suspect]

REACTIONS (1)
  - ACCIDENTAL EXPOSURE [None]
